APPROVED DRUG PRODUCT: PROPRANOLOL HYDROCHLORIDE & HYDROCHLOROTHIAZIDE
Active Ingredient: HYDROCHLOROTHIAZIDE; PROPRANOLOL HYDROCHLORIDE
Strength: 25MG;80MG
Dosage Form/Route: TABLET;ORAL
Application: A071127 | Product #001
Applicant: DURAMED PHARMACEUTICALS INC SUB BARR LABORATORIES INC
Approved: Mar 2, 1987 | RLD: No | RS: No | Type: DISCN